FAERS Safety Report 17252231 (Version 3)
Quarter: 2020Q1

REPORT INFORMATION
  Report Type: Spontaneous
  Country: US (occurrence: US)
  Receive Date: 20200109
  Receipt Date: 20200316
  Transmission Date: 20200409
  Serious: No
  Sender: FDA-Public Use
  Company Number: US-PFIZER INC-2020009063

PATIENT
  Age: 40 Year
  Sex: Female

DRUGS (1)
  1. XELJANZ [Suspect]
     Active Substance: TOFACITINIB CITRATE
     Indication: RHEUMATOID ARTHRITIS
     Dosage: 5 MG, 2X/DAY
     Route: 048
     Dates: start: 2019

REACTIONS (15)
  - Back pain [Unknown]
  - Memory impairment [Unknown]
  - Pain in extremity [Unknown]
  - Product dose omission [Unknown]
  - Fatigue [Unknown]
  - Neck pain [Unknown]
  - Asthenia [Unknown]
  - Laziness [Unknown]
  - Drug ineffective [Unknown]
  - Musculoskeletal pain [Unknown]
  - Hypoaesthesia [Unknown]
  - Insomnia [Unknown]
  - Arthralgia [Unknown]
  - Swelling [Unknown]
  - Anaemia [Unknown]
